FAERS Safety Report 6288718-X (Version None)
Quarter: 2009Q3

REPORT INFORMATION
  Report Type: 
  Country: None (occurrence: None)
  Receive Date: 20090729
  Receipt Date: 20090716
  Transmission Date: 20100115
  Serious: Yes (Hospitalization, Other)
  Sender: FDA-Public Use
  Company Number: PHHY2009IT25913

PATIENT
  Age: 32 Year
  Sex: Male

DRUGS (6)
  1. LEPONEX [Suspect]
     Indication: PSYCHOTIC DISORDER
     Dosage: 25 MG/DIE
     Route: 048
     Dates: start: 20090611
  2. LEPONEX [Suspect]
     Dosage: 300 MG/DIE
     Route: 048
     Dates: start: 20090611, end: 20090621
  3. LEPONEX [Suspect]
     Dosage: 200 MG
     Route: 048
  4. VALPROIC ACID [Concomitant]
  5. NOZINAN [Concomitant]
  6. TAVOR [Concomitant]
     Dosage: 2 MG, UNK

REACTIONS (6)
  - BLOOD CULTURE POSITIVE [None]
  - CARDIAC FAILURE [None]
  - HYPERPYREXIA [None]
  - LEUKOCYTOSIS [None]
  - MYOCARDITIS [None]
  - TROPONIN INCREASED [None]
